FAERS Safety Report 9984485 (Version 1)
Quarter: 2014Q1

REPORT INFORMATION
  Report Type: Report from Study
  Country: US (occurrence: US)
  Receive Date: 20140307
  Receipt Date: 20140307
  Transmission Date: 20141002
  Serious: No
  Sender: FDA-Public Use
  Company Number: US-ABBVIE-13P-163-1183793-00

PATIENT
  Age: 56 Year
  Sex: Male

DRUGS (22)
  1. HUMIRA [Suspect]
     Indication: RHEUMATOID ARTHRITIS
     Dates: start: 2010, end: 201308
  2. HUMIRA [Suspect]
     Indication: PSORIASIS
     Dates: start: 201308, end: 201312
  3. BETAMETHASONE [Suspect]
     Indication: PUSTULAR PSORIASIS
     Dates: start: 201305
  4. PREDNISONE [Suspect]
     Indication: PUSTULAR PSORIASIS
     Dosage: TAPERING DOSE
     Dates: start: 201308
  5. BLACK SEED [Suspect]
     Indication: PUSTULAR PSORIASIS
     Dates: start: 201308, end: 201310
  6. COAL TAR [Suspect]
     Indication: PUSTULAR PSORIASIS
  7. BETAMETHASONE CREAM 0.5 PERCENT WITH VITAMIN D [Suspect]
     Indication: PUSTULAR PSORIASIS
     Dates: start: 201308
  8. EFFIENT [Concomitant]
     Indication: BLOOD PRESSURE
  9. LIPITOR [Concomitant]
     Indication: BLOOD CHOLESTEROL
  10. METOPROLOL [Concomitant]
     Indication: CORONARY ARTERY DISEASE
  11. AVAPRO [Concomitant]
     Indication: BLOOD PRESSURE
  12. HCTZ [Concomitant]
     Indication: BLOOD PRESSURE
     Dosage: 12/5 MG
  13. PROTONIX [Concomitant]
     Indication: GASTROOESOPHAGEAL REFLUX DISEASE
  14. ZANTAC [Concomitant]
     Indication: GASTROOESOPHAGEAL REFLUX DISEASE
  15. MUCINEX [Concomitant]
     Indication: SEASONAL ALLERGY
     Dosage: TWICE DAILY
  16. CLARITIN [Concomitant]
     Indication: SEASONAL ALLERGY
  17. AMBIEN [Concomitant]
     Indication: INSOMNIA
  18. NIACIN [Concomitant]
     Indication: VITAMIN SUPPLEMENTATION
  19. OMEGA 3 [Concomitant]
     Indication: VITAMIN SUPPLEMENTATION
  20. VITAMIN B 12 [Concomitant]
     Indication: VITAMIN SUPPLEMENTATION
  21. ACIDOPHILUS [Concomitant]
     Indication: PROBIOTIC THERAPY
     Dosage: 100 MILLION UNITS
  22. METHOTREXATE [Concomitant]
     Indication: PRODUCT USED FOR UNKNOWN INDICATION
     Dates: end: 201311

REACTIONS (4)
  - Onychoclasis [Recovering/Resolving]
  - Pustular psoriasis [Not Recovered/Not Resolved]
  - Feeling abnormal [Unknown]
  - Local swelling [Unknown]
